FAERS Safety Report 23482100 (Version 1)
Quarter: 2024Q1

REPORT INFORMATION
  Report Type: Spontaneous
  Country: US (occurrence: None)
  Receive Date: 20240203
  Receipt Date: 20240203
  Transmission Date: 20240410
  Serious: Yes (Life-Threatening, Hospitalization, Other)
  Sender: FDA-Public Use
  Company Number: None

PATIENT
  Age: 88 Year
  Sex: Female
  Weight: 59.85 kg

DRUGS (7)
  1. PAXLOVID [Suspect]
     Active Substance: NIRMATRELVIR\RITONAVIR
     Indication: SARS-CoV-2 test positive
     Route: 048
     Dates: start: 20240103, end: 20240105
  2. LOSARTAN [Concomitant]
     Active Substance: LOSARTAN
  3. Predisolone acetate [Concomitant]
  4. Coenzyme Q-10 [Concomitant]
  5. VIT B-6 [Concomitant]
  6. VITAMIN D3 [Concomitant]
     Active Substance: CHOLECALCIFEROL
  7. Vit B-12 [Concomitant]

REACTIONS (6)
  - Feeling abnormal [None]
  - Loss of consciousness [None]
  - Hypoacusis [None]
  - Rash [None]
  - Rash pruritic [None]
  - Rash [None]

NARRATIVE: CASE EVENT DATE: 20240105
